FAERS Safety Report 12880600 (Version 1)
Quarter: 2016Q4

REPORT INFORMATION
  Report Type: Spontaneous
  Country: US (occurrence: US)
  Receive Date: 20161025
  Receipt Date: 20161025
  Transmission Date: 20170207
  Serious: Yes (Other)
  Sender: FDA-Public Use
  Company Number: US-ABBVIE-16P-163-1761092-00

PATIENT
  Sex: Female

DRUGS (1)
  1. LUPRON DEPOT [Suspect]
     Active Substance: LEUPROLIDE ACETATE
     Indication: PRODUCT USED FOR UNKNOWN INDICATION
     Route: 050

REACTIONS (12)
  - Hot flush [Unknown]
  - Pelvic pain [Unknown]
  - Smear cervix abnormal [Unknown]
  - Hysterectomy [Unknown]
  - Oophorectomy bilateral [Unknown]
  - Ovarian cyst [Unknown]
  - Depression [Unknown]
  - Fatigue [Unknown]
  - Migraine [Unknown]
  - Metrorrhagia [Unknown]
  - Menorrhagia [Unknown]
  - Dysmenorrhoea [Unknown]
